FAERS Safety Report 13659548 (Version 2)
Quarter: 2017Q4

REPORT INFORMATION
  Report Type: Spontaneous
  Country: US (occurrence: US)
  Receive Date: 20170616
  Receipt Date: 20171107
  Transmission Date: 20180320
  Serious: No
  Sender: FDA-Public Use
  Company Number: US-ASTRAZENECA-2017SE62271

PATIENT
  Age: 96 Year
  Sex: Male

DRUGS (11)
  1. METOPROLOL. [Suspect]
     Active Substance: METOPROLOL
     Indication: CARDIAC DISORDER
     Route: 048
  2. SYMBICORT [Suspect]
     Active Substance: BUDESONIDE\FORMOTEROL FUMARATE DIHYDRATE
     Indication: WHEEZING
     Dosage: 160/4.5 TWO TIMES A DAY
     Route: 055
     Dates: start: 20170611
  3. ASPIRIN. [Concomitant]
     Active Substance: ASPIRIN
  4. SYMBICORT [Suspect]
     Active Substance: BUDESONIDE\FORMOTEROL FUMARATE DIHYDRATE
     Indication: WHEEZING
     Dosage: 160/4.5 TWO TIMES A DAY
     Route: 055
     Dates: start: 20170520
  5. SYMBICORT [Suspect]
     Active Substance: BUDESONIDE\FORMOTEROL FUMARATE DIHYDRATE
     Indication: DYSPNOEA
     Dosage: 160/4.5 TWO TIMES A DAY
     Route: 055
     Dates: start: 20170611
  6. RAPAFLOW [Concomitant]
     Indication: PROSTATOMEGALY
  7. VITAMIN D [Concomitant]
     Active Substance: CHOLECALCIFEROL
     Indication: SUPPLEMENTATION THERAPY
  8. SYMBICORT [Suspect]
     Active Substance: BUDESONIDE\FORMOTEROL FUMARATE DIHYDRATE
     Indication: DYSPNOEA
     Dosage: 160/4.5 TWO TIMES A DAY
     Route: 055
     Dates: start: 20170520
  9. FUROSEMIDE. [Concomitant]
     Active Substance: FUROSEMIDE
     Indication: DIURETIC THERAPY
  10. NITROP [Concomitant]
     Dosage: AS REQUIRED
  11. LOVASTATIN. [Concomitant]
     Active Substance: LOVASTATIN
     Indication: BLOOD CHOLESTEROL INCREASED

REACTIONS (6)
  - Dyspnoea [Unknown]
  - Product use in unapproved indication [Unknown]
  - Muscle spasms [Unknown]
  - Circumstance or information capable of leading to medication error [Unknown]
  - Device issue [Unknown]
  - Off label use [Unknown]

NARRATIVE: CASE EVENT DATE: 2017
